FAERS Safety Report 15496274 (Version 2)
Quarter: 2018Q4

REPORT INFORMATION
  Report Type: Spontaneous
  Country: US (occurrence: US)
  Receive Date: 20181012
  Receipt Date: 20181113
  Transmission Date: 20190205
  Serious: Yes (Death, Other)
  Sender: FDA-Public Use
  Company Number: US-DSJP-DSU-2017-148982

PATIENT

DRUGS (2)
  1. BENICAR [Suspect]
     Active Substance: OLMESARTAN MEDOXOMIL
     Dosage: 40 MG, QD
     Route: 048
     Dates: start: 20050101
  2. BENICAR [Suspect]
     Active Substance: OLMESARTAN MEDOXOMIL
     Indication: PRODUCT USED FOR UNKNOWN INDICATION
     Dosage: 20 MG, UNK
     Dates: start: 20050101

REACTIONS (6)
  - Sprue-like enteropathy [Not Recovered/Not Resolved]
  - Gastric ulcer [Unknown]
  - Hiatus hernia [Unknown]
  - Upper gastrointestinal haemorrhage [Unknown]
  - Peptic ulcer [Unknown]
  - Rectal polyp [Recovered/Resolved]

NARRATIVE: CASE EVENT DATE: 20060809
